FAERS Safety Report 9367163 (Version 1)
Quarter: 2013Q2

REPORT INFORMATION
  Report Type: Spontaneous
  Country: US (occurrence: US)
  Receive Date: 20130625
  Receipt Date: 20130625
  Transmission Date: 20140414
  Serious: No
  Sender: FDA-Public Use
  Company Number: US-ASTELLAS-2012US004870

PATIENT
  Sex: 0

DRUGS (3)
  1. VESICARE [Suspect]
     Indication: URINARY INCONTINENCE
     Dosage: 5 MG, UID/QD
     Route: 048
  2. ALPHAGAN [Concomitant]
     Indication: GLAUCOMA
     Dosage: UNK
     Route: 065
  3. AMIODARONE [Concomitant]
     Indication: CARDIAC DISORDER
     Dosage: 200 MG, UNKNOWN/D
     Route: 065

REACTIONS (1)
  - Drug ineffective [Unknown]
